FAERS Safety Report 11678908 (Version 1)
Quarter: 2015Q4

REPORT INFORMATION
  Report Type: Spontaneous
  Country: US (occurrence: US)
  Receive Date: 20151027
  Receipt Date: 20151027
  Transmission Date: 20160304
  Serious: No
  Sender: FDA-Public Use
  Company Number: US-ELI_LILLY_AND_COMPANY-US201011005055

PATIENT
  Age: 59 Year
  Sex: Female

DRUGS (1)
  1. FORTEO [Suspect]
     Active Substance: TERIPARATIDE
     Indication: OSTEOPOROSIS
     Dosage: 20 UG, DAILY (1/D)
     Dates: start: 200908

REACTIONS (4)
  - Dry mouth [Recovering/Resolving]
  - Thirst [Recovering/Resolving]
  - Aptyalism [Recovering/Resolving]
  - Lip dry [Recovering/Resolving]

NARRATIVE: CASE EVENT DATE: 201005
